FAERS Safety Report 19847519 (Version 1)
Quarter: 2021Q3

REPORT INFORMATION
  Report Type: Spontaneous
  Country: DE (occurrence: DE)
  Receive Date: 20210917
  Receipt Date: 20210917
  Transmission Date: 20211014
  Serious: Yes (Hospitalization)
  Sender: FDA-Public Use
  Company Number: DE-TEVA-2021-DE-1951974

PATIENT
  Age: 51 Year
  Sex: Female
  Weight: 71 kg

DRUGS (3)
  1. PREGABALIN. [Concomitant]
     Active Substance: PREGABALIN
     Dosage: 100 MILLIGRAM DAILY; 0?0?1?0
  2. IBUPROFEN. [Suspect]
     Active Substance: IBUPROFEN
     Dosage: 800 MG, AS NEEDED
     Route: 065
  3. VENLAFAXIN [Suspect]
     Active Substance: VENLAFAXINE HYDROCHLORIDE
     Dosage: 150 MILLIGRAM DAILY; 1?0?0?0

REACTIONS (8)
  - Vomiting [Unknown]
  - Systemic infection [Unknown]
  - Anaemia [Unknown]
  - Orthostatic intolerance [Unknown]
  - Diarrhoea [Unknown]
  - Haematochezia [Unknown]
  - General physical health deterioration [Unknown]
  - Nausea [Unknown]
